FAERS Safety Report 6306986-2 (Version None)
Quarter: 2009Q3

REPORT INFORMATION
  Report Type: 
  Country: None (occurrence: None)
  Receive Date: 20090812
  Receipt Date: 20090810
  Transmission Date: 20100115
  Serious: Yes (Hospitalization, Other)
  Sender: FDA-Public Use
  Company Number: IR-ROXANE LABORATORIES, INC.-2009-RO-00798RO

PATIENT
  Age: 23 Year
  Sex: Male

DRUGS (4)
  1. MYCOPHENOLATE MOFETIL (CAPSULES) [Suspect]
     Indication: IMMUNOSUPPRESSION
     Dosage: 15 MG
  2. TACROLIMUS [Suspect]
     Indication: IMMUNOSUPPRESSION
  3. PREDNISOLONE [Suspect]
     Indication: IMMUNOSUPPRESSION
  4. CHEMOTHERAPY [Concomitant]
     Indication: BRAIN NEOPLASM

REACTIONS (4)
  - BRAIN NEOPLASM [None]
  - EPSTEIN-BARR VIRUS ASSOCIATED LYMPHOPROLIFERATIVE DISORDER [None]
  - PNEUMONIA [None]
  - URINARY TRACT INFECTION [None]
